FAERS Safety Report 25765211 (Version 1)
Quarter: 2025Q3

REPORT INFORMATION
  Report Type: Spontaneous
  Country: TR (occurrence: TR)
  Receive Date: 20250905
  Receipt Date: 20250905
  Transmission Date: 20251021
  Serious: Yes (Other)
  Sender: RANBAXY
  Company Number: TR-SUN PHARMACEUTICAL INDUSTRIES INC-2025R1-525820

PATIENT
  Age: 34 Year
  Sex: Female

DRUGS (1)
  1. FLUOROURACIL [Suspect]
     Active Substance: FLUOROURACIL
     Indication: Xeroderma pigmentosum
     Route: 061

REACTIONS (4)
  - Treatment noncompliance [Unknown]
  - Burning sensation [Unknown]
  - Skin irritation [Unknown]
  - Erythema [Unknown]
